FAERS Safety Report 4677702-5 (Version None)
Quarter: 2005Q2

REPORT INFORMATION
  Report Type: 
  Country: None (occurrence: None)
  Receive Date: 20050527
  Receipt Date: 20050519
  Transmission Date: 20051028
  Serious: Yes (Death, Hospitalization)
  Sender: FDA-Public Use
  Company Number: HQWYE794019MAY05

PATIENT
  Age: 60 Year
  Sex: Male

DRUGS (9)
  1. CORDARONE [Suspect]
     Indication: ATRIAL FIBRILLATION
     Dosage: 400 MG 1X PER 1 DAY
     Route: 048
     Dates: start: 20041223
  2. CORDARONE [Suspect]
     Indication: ATRIAL FLUTTER
     Dosage: 400 MG 1X PER 1 DAY
     Route: 048
     Dates: start: 20041223
  3. NEXIUM [Suspect]
     Dosage: 40 MG 1X PER 1 DAY
     Route: 048
     Dates: start: 20041215, end: 20050130
  4. TARGOCID (TEICOPLANIN, INJECTION) [Suspect]
     Indication: ENDOCARDITIS BACTERIAL
     Dosage: 600 MG 1X PER 1 DAY
     Route: 042
     Dates: start: 20050113, end: 20050121
  5. VANCOMYCIN [Suspect]
     Indication: ENDOCARDITIS BACTERIAL
     Dates: start: 20050131
  6. FLAGYL [Concomitant]
  7. GENTAMICIN [Concomitant]
  8. AMOXICILLIN TRIHYDRATE [Concomitant]
  9. AUGMENTIN (AMOXICILLIN SODIUM/CLAVULANATE POTASSIUM) [Concomitant]

REACTIONS (7)
  - BONE MARROW DEPRESSION [None]
  - CARDIAC ARREST [None]
  - CONDITION AGGRAVATED [None]
  - ESCHERICHIA SEPSIS [None]
  - HAEMODIALYSIS [None]
  - RENAL FAILURE [None]
  - SEPTIC SHOCK [None]
